FAERS Safety Report 11593303 (Version 1)
Quarter: 2015Q4

REPORT INFORMATION
  Report Type: Spontaneous
  Country: US (occurrence: None)
  Receive Date: 20151002
  Receipt Date: 20151002
  Transmission Date: 20160304
  Serious: No
  Sender: FDA-Public Use
  Company Number: None

PATIENT
  Sex: Female
  Weight: 66.68 kg

DRUGS (14)
  1. CELEBREX [Concomitant]
     Active Substance: CELECOXIB
  2. TYLENOL [Concomitant]
     Active Substance: ACETAMINOPHEN
  3. ACIPHEX [Concomitant]
     Active Substance: RABEPRAZOLE SODIUM
  4. BENADRYL [Concomitant]
     Active Substance: DIPHENHYDRAMINE HYDROCHLORIDE
  5. ONE BABY ASPIRIN DAILY [Concomitant]
  6. ALIGN (PROBIOTIC) [Concomitant]
  7. VITAMIN B COMPLEX [Concomitant]
     Active Substance: CYANOCOBALAMIN\DEXPANTHENOL\NIACINAMIDE\PYRIDOXINE HYDROCHLORIDE\RIBOFLAVIN 5^-PHOSPHATE SODIUM\THIAMINE HYDROCHLORIDE\VITAMIN B COMPLEX
  8. IMMODIUM D [Concomitant]
  9. CELECOXIB GENERIC [Suspect]
     Active Substance: CELECOXIB
     Indication: OSTEOARTHRITIS
     Dosage: 1 PILL AM OR RARELY 1 ALSO IN PM
     Route: 048
     Dates: start: 201506, end: 20150701
  10. AZOPT [Concomitant]
     Active Substance: BRINZOLAMIDE
  11. LISINOPRIL. [Concomitant]
     Active Substance: LISINOPRIL
  12. VALIUM [Concomitant]
     Active Substance: DIAZEPAM
  13. VITAMIN D COMPLEX [Concomitant]
  14. CALCIUM CITRATE  WITH VITAMIN D [Concomitant]
     Active Substance: CALCIUM CITRATE\VITAMIN D

REACTIONS (4)
  - Drug ineffective [None]
  - Quality of life decreased [None]
  - Product substitution issue [None]
  - Arthralgia [None]

NARRATIVE: CASE EVENT DATE: 201506
